FAERS Safety Report 4627984-0 (Version None)
Quarter: 2005Q2

REPORT INFORMATION
  Report Type: 
  Country: None (occurrence: None)
  Receive Date: 20050401
  Receipt Date: 20050318
  Transmission Date: 20051028
  Serious: Yes (Death)
  Sender: FDA-Public Use
  Company Number: 2005S1001338

PATIENT
  Age: 79 Year
  Sex: Male

DRUGS (7)
  1. CLOZAPINE [Suspect]
     Indication: SCHIZOPHRENIA
     Dosage: 100 MG; Q8H; PO
     Route: 048
     Dates: start: 20010501
  2. CARBIDOPA AND LEVODOPA [Concomitant]
  3. METOPROLOL SUCCINATE [Concomitant]
  4. FLECAINIDE ACETATE [Concomitant]
  5. MONTELUKAST SODIUM [Concomitant]
  6. FINASTERIDE [Concomitant]
  7. ATORVASTATIN CALCIUM [Concomitant]

REACTIONS (1)
  - RENAL FAILURE [None]
